FAERS Safety Report 9914652 (Version 5)
Quarter: 2014Q2

REPORT INFORMATION
  Report Type: Spontaneous
  Country: US (occurrence: US)
  Receive Date: 20140220
  Receipt Date: 20140626
  Transmission Date: 20141212
  Serious: Yes (Hospitalization, Other)
  Sender: FDA-Public Use
  Company Number: US-009507513-1203USA02672

PATIENT
  Sex: Female
  Weight: 70.75 kg

DRUGS (4)
  1. FOSAMAX [Suspect]
     Indication: OSTEOPENIA
     Dosage: 70 MG, QW
     Route: 048
     Dates: end: 2007
  2. FOSAMAX [Suspect]
     Indication: OSTEOPOROSIS
     Dosage: UNK
     Route: 048
     Dates: start: 20090227
  3. FOSAMAX [Suspect]
     Route: 048
  4. FOSAMAX PLUS D [Suspect]
     Dosage: 70 MG/2800 IU, UNK
     Route: 048

REACTIONS (55)
  - Femur fracture [Recovering/Resolving]
  - Intramedullary rod insertion [Unknown]
  - Haemorrhagic anaemia [Recovering/Resolving]
  - Aspartate aminotransferase increased [Unknown]
  - Alanine aminotransferase increased [Unknown]
  - Humerus fracture [Recovering/Resolving]
  - Femur fracture [Unknown]
  - Metastatic neoplasm [Unknown]
  - Spinal laminectomy [Recovered/Resolved with Sequelae]
  - Humerus fracture [Unknown]
  - Tibia fracture [Unknown]
  - Clavicle fracture [Unknown]
  - Rib fracture [Unknown]
  - Contusion [Unknown]
  - Accident [Unknown]
  - Scapula fracture [Recovering/Resolving]
  - Traumatic liver injury [Unknown]
  - Blood urine present [Unknown]
  - Blood glucose increased [Unknown]
  - Rib fracture [Recovered/Resolved]
  - Clavicle fracture [Recovering/Resolving]
  - Adrenal mass [Unknown]
  - Dysphonia [Unknown]
  - Hepatic cyst [Unknown]
  - Renal cyst [Unknown]
  - Osteoarthritis [Unknown]
  - Spinal osteoarthritis [Unknown]
  - Hypertension [Unknown]
  - Hypercholesterolaemia [Unknown]
  - Tonsillectomy [Unknown]
  - Appendicectomy [Unknown]
  - Hysterectomy [Unknown]
  - Breath sounds abnormal [Unknown]
  - Hypoaesthesia [Unknown]
  - Fall [Unknown]
  - Osteochondrosis [Unknown]
  - Osteoarthritis [Unknown]
  - Lipoma [Unknown]
  - Fatigue [Unknown]
  - Rales [Unknown]
  - Spinal compression fracture [Not Recovered/Not Resolved]
  - Facial bones fracture [Unknown]
  - Contusion [Unknown]
  - Osteoarthritis [Unknown]
  - Tendonitis [Recovering/Resolving]
  - Lipoma [Unknown]
  - Constipation [Unknown]
  - Pain in extremity [Unknown]
  - Pruritus [Unknown]
  - Constipation [Unknown]
  - Gastrooesophageal reflux disease [Unknown]
  - Musculoskeletal chest pain [Unknown]
  - Musculoskeletal pain [Not Recovered/Not Resolved]
  - Pain in extremity [Not Recovered/Not Resolved]
  - Drug ineffective [Unknown]
